FAERS Safety Report 12376432 (Version 1)
Quarter: 2016Q2

REPORT INFORMATION
  Report Type: Spontaneous
  Country: BE (occurrence: BE)
  Receive Date: 20160517
  Receipt Date: 20160517
  Transmission Date: 20160815
  Serious: Yes (Other)
  Sender: FDA-Public Use
  Company Number: BE-WATSON-2016-10025

PATIENT
  Age: 54 Year
  Sex: Female
  Weight: 97 kg

DRUGS (5)
  1. SULFASALAZINE (WATSON LABORATORIES) [Suspect]
     Active Substance: SULFASALAZINE
     Indication: PSORIATIC ARTHROPATHY
     Dosage: 500 MG, UNKNOWN 6 X 500 MG/DAY
     Route: 065
  2. METFORMIN [Concomitant]
     Active Substance: METFORMIN HYDROCHLORIDE
     Indication: TYPE 2 DIABETES MELLITUS
     Dosage: 850 MG, TID
     Route: 065
  3. VERAPAMIL [Concomitant]
     Active Substance: VERAPAMIL HYDROCHLORIDE
     Indication: ATRIAL TACHYCARDIA
     Dosage: 80 MG, UUNK; 6 X 80 MG/DAY
     Route: 065
  4. METFORMIN [Concomitant]
     Active Substance: METFORMIN HYDROCHLORIDE
     Indication: DIABETIC NEPHROPATHY
  5. PERINDOPRIL [Concomitant]
     Active Substance: PERINDOPRIL
     Indication: DIABETIC NEPHROPATHY
     Dosage: 5 MG, DAILY
     Route: 065

REACTIONS (1)
  - Nephrolithiasis [Recovering/Resolving]
